FAERS Safety Report 22177438 (Version 1)
Quarter: 2023Q2

REPORT INFORMATION
  Report Type: Spontaneous
  Country: US (occurrence: US)
  Receive Date: 20230405
  Receipt Date: 20230405
  Transmission Date: 20230721
  Serious: No
  Sender: FDA-Public Use
  Company Number: US-CHEMOCENTRYX, INC.-2023USCCXI0754

PATIENT

DRUGS (3)
  1. TAVNEOS [Suspect]
     Active Substance: AVACOPAN
     Indication: Inflammation
     Dosage: 30 MG, 2X/DAY WITH FOOD
     Route: 048
     Dates: start: 202301, end: 202301
  2. TAVNEOS [Suspect]
     Active Substance: AVACOPAN
     Indication: Nephritis
     Dosage: 30 MG, 2X/DAY WITH FOOD
     Route: 048
  3. CALCIUM [Concomitant]
     Active Substance: CALCIUM
     Indication: Product used for unknown indication
     Route: 065

REACTIONS (4)
  - Erythema [Unknown]
  - Papule [Unknown]
  - Viral infection [Recovering/Resolving]
  - Productive cough [Recovering/Resolving]
